FAERS Safety Report 10215899 (Version 1)
Quarter: 2014Q2

REPORT INFORMATION
  Report Type: Spontaneous
  Country: US (occurrence: None)
  Receive Date: 20140603
  Receipt Date: 20140603
  Transmission Date: 20141212
  Serious: Yes (Hospitalization)
  Sender: FDA-Public Use
  Company Number: None

PATIENT
  Age: 77 Year
  Sex: Male

DRUGS (1)
  1. ZYTIGA 250MG [Suspect]
     Route: 048

REACTIONS (4)
  - Memory impairment [None]
  - Transient ischaemic attack [None]
  - Balance disorder [None]
  - Blood glucose fluctuation [None]
